FAERS Safety Report 14612134 (Version 6)
Quarter: 2019Q1

REPORT INFORMATION
  Report Type: Spontaneous
  Country: US (occurrence: US)
  Receive Date: 20180308
  Receipt Date: 20190201
  Transmission Date: 20190417
  Serious: Yes (Death, Hospitalization, Other)
  Sender: FDA-Public Use
  Company Number: US-ASTRAZENECA-2018SE28069

PATIENT
  Age: 696 Month
  Sex: Male
  Weight: 104.3 kg

DRUGS (49)
  1. LYRICA [Concomitant]
     Active Substance: PREGABALIN
     Route: 048
  2. CALCIUM ACETATE. [Concomitant]
     Active Substance: CALCIUM ACETATE
     Route: 048
  3. LEVOTHYROXINE. [Concomitant]
     Active Substance: LEVOTHYROXINE
     Route: 048
  4. VITAMIN D [Concomitant]
     Active Substance: CHOLECALCIFEROL
     Indication: BONE DISORDER
     Route: 065
     Dates: start: 2014, end: 2018
  5. VITAMIN E [Concomitant]
     Active Substance: .ALPHA.-TOCOPHEROL
     Indication: SKIN DISORDER
     Route: 065
     Dates: start: 2014, end: 2018
  6. PRADAXA [Concomitant]
     Active Substance: DABIGATRAN ETEXILATE MESYLATE
     Route: 048
  7. VITAMIN B12 [Concomitant]
     Active Substance: CYANOCOBALAMIN
     Dosage: 500 MG EVERY WEEK
     Route: 048
  8. DRISDOL [Concomitant]
     Active Substance: ERGOCALCIFEROL
     Dosage: 5000 UNITS DAILY
     Route: 048
  9. SOTALOL. [Concomitant]
     Active Substance: SOTALOL
     Route: 048
  10. NEXIUM [Suspect]
     Active Substance: ESOMEPRAZOLE MAGNESIUM
     Indication: GASTROOESOPHAGEAL REFLUX DISEASE
     Route: 048
     Dates: start: 2004, end: 2011
  11. NEXIUM [Suspect]
     Active Substance: ESOMEPRAZOLE MAGNESIUM
     Indication: GASTROOESOPHAGEAL REFLUX DISEASE
     Route: 048
     Dates: start: 20040529
  12. TRICOR [Concomitant]
     Active Substance: FENOFIBRATE
     Indication: HYPERLIPIDAEMIA
     Route: 048
  13. VYTORIN [Concomitant]
     Active Substance: EZETIMIBE\SIMVASTATIN
     Dosage: 10-40 MG
     Route: 048
  14. ASPIRIN. [Concomitant]
     Active Substance: ASPIRIN
     Route: 048
  15. LYRICA [Concomitant]
     Active Substance: PREGABALIN
     Route: 048
  16. FERROUS SULFATE. [Concomitant]
     Active Substance: FERROUS SULFATE
     Route: 048
  17. OMEPRAZOLE. [Suspect]
     Active Substance: OMEPRAZOLE
     Indication: GASTROOESOPHAGEAL REFLUX DISEASE
     Route: 065
  18. IRON [Concomitant]
     Active Substance: IRON
     Indication: ANAEMIA
     Route: 048
  19. BACTRIM [Concomitant]
     Active Substance: SULFAMETHOXAZOLE\TRIMETHOPRIM
     Dosage: 160.0MG UNKNOWN
     Route: 048
  20. MULTIVITAMIN [Concomitant]
     Active Substance: VITAMINS
     Route: 048
  21. ATORVASTATIN [Concomitant]
     Active Substance: ATORVASTATIN
     Indication: BLOOD CHOLESTEROL
     Route: 048
  22. PROTONIX [Concomitant]
     Active Substance: PANTOPRAZOLE SODIUM
     Route: 048
  23. OMEPRAZOLE. [Suspect]
     Active Substance: OMEPRAZOLE
     Indication: GASTROOESOPHAGEAL REFLUX DISEASE
     Route: 048
     Dates: start: 20101210, end: 201206
  24. FUROSEMIDE. [Concomitant]
     Active Substance: FUROSEMIDE
     Indication: OEDEMA PERIPHERAL
     Route: 048
  25. ULORIC [Concomitant]
     Active Substance: FEBUXOSTAT
     Route: 048
  26. CLINDAMYCIN. [Concomitant]
     Active Substance: CLINDAMYCIN
     Dosage: 300.0MG UNKNOWN
     Route: 048
  27. LOVAZA [Concomitant]
     Active Substance: OMEGA-3-ACID ETHYL ESTERS
     Route: 048
  28. ALLOPURINOL. [Concomitant]
     Active Substance: ALLOPURINOL
     Route: 048
  29. CHOLECALCIFEROL [Concomitant]
     Active Substance: CHOLECALCIFEROL
     Dosage: 5000 UNIT ORALLY EVERY DAY
     Route: 065
  30. MORPHINE [Concomitant]
     Active Substance: MORPHINE
     Dosage: 4MG/ML
     Route: 065
  31. ACTOS [Concomitant]
     Active Substance: PIOGLITAZONE HYDROCHLORIDE
     Dosage: 300.0MG UNKNOWN
     Route: 048
  32. AMIODARONE [Concomitant]
     Active Substance: AMIODARONE
     Route: 048
  33. PARACETAMOL [Concomitant]
     Active Substance: ACETAMINOPHEN
     Route: 065
  34. METOPROLOL TARTRATE. [Concomitant]
     Active Substance: METOPROLOL TARTRATE
     Route: 048
  35. NEXIUM [Suspect]
     Active Substance: ESOMEPRAZOLE MAGNESIUM
     Indication: GASTROOESOPHAGEAL REFLUX DISEASE
     Route: 048
     Dates: start: 20040504, end: 20110222
  36. ZAROXOLYN [Concomitant]
     Active Substance: METOLAZONE
     Route: 048
  37. CALCIUM [Concomitant]
     Active Substance: CALCIUM
     Route: 048
  38. NOVOLOG [Concomitant]
     Active Substance: INSULIN ASPART
     Dosage: 70-30 % SUBCUTANEOUS SUSPENSION
     Route: 065
  39. RANITIDINE. [Concomitant]
     Active Substance: RANITIDINE
     Route: 048
     Dates: start: 20161219
  40. PIPERACILLIN/TAZOBACTAM [Concomitant]
     Active Substance: PIPERACILLIN SODIUM\TAZOBACTAM SODIUM
     Route: 065
  41. ACETAMINOPHEN. [Concomitant]
     Active Substance: ACETAMINOPHEN
     Route: 048
  42. OMEPRAZOLE. [Suspect]
     Active Substance: OMEPRAZOLE
     Indication: GASTROOESOPHAGEAL REFLUX DISEASE
     Dosage: GENERIC
     Route: 048
     Dates: start: 20110609
  43. CARVEDILOL. [Concomitant]
     Active Substance: CARVEDILOL
     Route: 048
  44. COUMADIN [Concomitant]
     Active Substance: WARFARIN SODIUM
     Route: 048
  45. ALTACE [Concomitant]
     Active Substance: RAMIPRIL
     Route: 048
  46. MULTAQ [Concomitant]
     Active Substance: DRONEDARONE
     Route: 048
  47. ELIQUIS [Concomitant]
     Active Substance: APIXABAN
     Route: 048
  48. NITROSTAT [Concomitant]
     Active Substance: NITROGLYCERIN
     Route: 048
  49. HUMALOG [Concomitant]
     Active Substance: INSULIN LISPRO
     Route: 065

REACTIONS (12)
  - Renal disorder [Unknown]
  - End stage renal disease [Unknown]
  - Chronic kidney disease [Fatal]
  - Hyperparathyroidism secondary [Unknown]
  - Tubulointerstitial nephritis [Unknown]
  - Coronary artery disease [Fatal]
  - Renal failure [Unknown]
  - Acute kidney injury [Unknown]
  - Renal tubular necrosis [Unknown]
  - Sudden cardiac death [Fatal]
  - Nephrogenic anaemia [Unknown]
  - Nephropathy [Not Recovered/Not Resolved]

NARRATIVE: CASE EVENT DATE: 200708
